FAERS Safety Report 7291161-8 (Version None)
Quarter: 2011Q1

REPORT INFORMATION
  Report Type: 
  Country: None (occurrence: None)
  Receive Date: 20110214
  Receipt Date: 20110207
  Transmission Date: 20110831
  Serious: Yes (Other)
  Sender: FDA-Public Use
  Company Number: JP-MERCK-1102USA01244

PATIENT
  Age: 79 Year
  Sex: Male

DRUGS (2)
  1. PEPCID [Suspect]
     Route: 051
  2. MIDAZOLAM HCL [Suspect]
     Route: 051

REACTIONS (2)
  - ANURIA [None]
  - BLOOD CREATINE PHOSPHOKINASE INCREASED [None]
